FAERS Safety Report 9965535 (Version 1)
Quarter: 2014Q1

REPORT INFORMATION
  Report Type: Report from Study
  Country: US (occurrence: US)
  Receive Date: 20140305
  Receipt Date: 20140305
  Transmission Date: 20141002
  Serious: No
  Sender: FDA-Public Use
  Company Number: US-ABBVIE-13P-163-1125585-00

PATIENT
  Age: 54 Year
  Sex: Female

DRUGS (4)
  1. HUMIRA [Suspect]
     Indication: CROHN^S DISEASE
     Dosage: 160 MG DAY 1
     Dates: start: 20130705, end: 20130705
  2. HUMIRA [Suspect]
     Indication: PSORIASIS
     Dosage: 80 MG DAY 15
  3. PROZAC [Concomitant]
     Indication: DEPRESSION
     Dosage: 20 MG DAILY
  4. CRESTOR [Concomitant]
     Indication: PRODUCT USED FOR UNKNOWN INDICATION
     Dosage: 20 MG DAILY

REACTIONS (1)
  - Psoriasis [Not Recovered/Not Resolved]
